FAERS Safety Report 9542281 (Version 1)
Quarter: 2013Q2

REPORT INFORMATION
  Report Type: Spontaneous
  Country: US (occurrence: None)
  Receive Date: 20130524
  Receipt Date: 20130524
  Transmission Date: 20140414
  Serious: No
  Sender: FDA-Public Use
  Company Number: PHEH2012US025230

PATIENT
  Age: 49 Year
  Sex: Female
  Weight: 56.7 kg

DRUGS (5)
  1. GILENYA (FINGOLIMOD) CAPSULE [Suspect]
     Indication: MULTIPLE SCLEROSIS
     Dates: start: 201212, end: 201212
  2. BENADRYL(CAMPHOR, DIPHENHYDRAMINE HYDROCHLORIDE, ZINC OXIDE) [Concomitant]
  3. PROVIGIL(MODAFINIL) [Concomitant]
  4. WELLBUTRIN(BUPROPION HYDROCHLORIDE) [Concomitant]
  5. FIORINAL WITH CODEINE(ACETYLSALICYLIC ACID, BUTALBITAL, CAFFEINE, CODEINE PHOSPHATE, PHENACETIN) [Concomitant]

REACTIONS (7)
  - Nausea [None]
  - Pruritus generalised [None]
  - Oral herpes [None]
  - Dyspnoea [None]
  - Overdose [None]
  - Cough [None]
  - Vision blurred [None]
